FAERS Safety Report 11271007 (Version 1)
Quarter: 2015Q3

REPORT INFORMATION
  Report Type: Spontaneous
  Country: US (occurrence: US)
  Receive Date: 20150714
  Receipt Date: 20150714
  Transmission Date: 20151125
  Serious: No
  Sender: FDA-Public Use
  Company Number: US-PFIZER INC-2015228021

PATIENT
  Age: 42 Year
  Sex: Male
  Weight: 258 kg

DRUGS (1)
  1. ADVIL [Suspect]
     Active Substance: IBUPROFEN
     Dosage: UNK (TOOK 5 OR 6)

REACTIONS (5)
  - Incorrect dose administered [Unknown]
  - Painful erection [Unknown]
  - Mobility decreased [Unknown]
  - Erection increased [Unknown]
  - Penis disorder [Unknown]
